FAERS Safety Report 18411962 (Version 1)
Quarter: 2020Q4

REPORT INFORMATION
  Report Type: Spontaneous
  Country: CA (occurrence: CA)
  Receive Date: 20201022
  Receipt Date: 20201022
  Transmission Date: 20210114
  Serious: Yes (Hospitalization, Other)
  Sender: FDA-Public Use
  Company Number: CA-JNJFOC-20201027067

PATIENT
  Age: 33 Year
  Sex: Female

DRUGS (5)
  1. INDOCID                            /00003801/ [Concomitant]
     Active Substance: INDOMETHACIN
  2. MORPHINE [Concomitant]
     Active Substance: MORPHINE
     Dosage: AS REQUIRED
  3. INFLIXIMAB, RECOMBINANT [Suspect]
     Active Substance: INFLIXIMAB
     Indication: ANKYLOSING SPONDYLITIS
     Route: 042
  4. NAPROXEN. [Concomitant]
     Active Substance: NAPROXEN
  5. VOLTAREN [Concomitant]
     Active Substance: DICLOFENAC SODIUM

REACTIONS (7)
  - Arthritis [Unknown]
  - Pyrexia [Unknown]
  - Colitis ulcerative [Unknown]
  - Arthralgia [Unknown]
  - Diverticulitis [Unknown]
  - Malaise [Unknown]
  - Inappropriate schedule of product administration [Unknown]
